FAERS Safety Report 5351223-9 (Version None)
Quarter: 2007Q2

REPORT INFORMATION
  Report Type: 
  Country: None (occurrence: None)
  Receive Date: 20070608
  Receipt Date: 20070531
  Transmission Date: 20071010
  Serious: Yes (Other)
  Sender: FDA-Public Use
  Company Number: CH-AMGEN-UK225271

PATIENT
  Age: 47 Year
  Sex: Female
  Weight: 50 kg

DRUGS (15)
  1. ARANESP [Suspect]
     Indication: ANAEMIA
     Route: 058
     Dates: start: 20070316, end: 20070516
  2. ASPIRIN [Concomitant]
     Route: 048
  3. SELIPRAN [Concomitant]
     Route: 048
  4. LOSARTAN POTASSIUM [Concomitant]
     Route: 048
  5. TENORMIN [Concomitant]
     Route: 048
  6. CELLCEPT [Concomitant]
     Route: 048
  7. SANDIMMUNE [Concomitant]
     Route: 048
  8. CEFPODOXIME PROXETIL [Concomitant]
     Route: 048
  9. EFFEXOR [Concomitant]
     Route: 048
  10. VALTREX [Concomitant]
     Route: 048
  11. ADALAT [Concomitant]
     Route: 048
  12. ROCALTROL [Concomitant]
     Route: 048
  13. VITAMIN CAP [Concomitant]
     Route: 048
  14. CALCIUM ACETATE [Concomitant]
     Route: 048
  15. INSULIN [Concomitant]
     Route: 058

REACTIONS (1)
  - ANAEMIA [None]
